FAERS Safety Report 20840342 (Version 3)
Quarter: 2022Q2

REPORT INFORMATION
  Report Type: Spontaneous
  Country: DE (occurrence: DE)
  Receive Date: 20220517
  Receipt Date: 20220620
  Transmission Date: 20220720
  Serious: Yes (Hospitalization, Other)
  Sender: FDA-Public Use
  Company Number: DE-ROCHE-3076400

PATIENT
  Age: 64 Year
  Sex: Female
  Weight: 68 kg

DRUGS (18)
  1. BEVACIZUMAB [Suspect]
     Active Substance: BEVACIZUMAB
     Indication: Hepatocellular carcinoma
     Route: 065
     Dates: start: 20210617
  2. BEVACIZUMAB [Suspect]
     Active Substance: BEVACIZUMAB
     Route: 065
     Dates: start: 20220330
  3. DAKLINZA [Suspect]
     Active Substance: DACLATASVIR
     Indication: Chronic hepatitis C
     Route: 048
     Dates: start: 20150702, end: 20150924
  4. ATEZOLIZUMAB [Suspect]
     Active Substance: ATEZOLIZUMAB
     Indication: Hepatocellular carcinoma
     Route: 042
     Dates: start: 20210617
  5. ATEZOLIZUMAB [Suspect]
     Active Substance: ATEZOLIZUMAB
     Route: 042
     Dates: start: 20220330
  6. SOVALDI [Suspect]
     Active Substance: SOFOSBUVIR
     Indication: Chronic hepatitis C
     Route: 048
     Dates: start: 20150702, end: 20150924
  7. TORSEMIDE [Concomitant]
     Active Substance: TORSEMIDE
     Dosage: ONGOING
  8. TORSEMIDE [Concomitant]
     Active Substance: TORSEMIDE
     Dosage: ONGOING
     Dates: start: 202106
  9. LENVATINIB [Concomitant]
     Active Substance: LENVATINIB
     Dosage: ONGOING
     Dates: start: 20200508
  10. HOMEOPATHICS [Concomitant]
     Active Substance: HOMEOPATHICS
     Dates: start: 20150521, end: 20150702
  11. GELATINE [Concomitant]
     Dosage: ONGOING
     Dates: start: 20150625
  12. MCP [Concomitant]
     Active Substance: METOCLOPRAMIDE HYDROCHLORIDE
     Dosage: ONGOING
     Dates: start: 202106
  13. SORAFENIB [Concomitant]
     Active Substance: SORAFENIB
     Dates: start: 202104, end: 202106
  14. VOLTAREN [Concomitant]
     Active Substance: DICLOFENAC SODIUM
     Dosage: ONGOING
  15. HYALURONIC ACID [Concomitant]
     Active Substance: HYALURONIC ACID
     Dosage: ONGOING
     Dates: start: 20150201
  16. FISH OIL [Concomitant]
     Active Substance: FISH OIL
     Dosage: ONGOING
  17. MOVICOL [Concomitant]
     Active Substance: POLYETHYLENE GLYCOL 3350\POTASSIUM CHLORIDE\SODIUM BICARBONATE\SODIUM CHLORIDE
     Dosage: ONGOING
     Dates: start: 20150716
  18. CHOLECALCIFEROL [Concomitant]
     Active Substance: CHOLECALCIFEROL
     Dosage: ONGOING

REACTIONS (7)
  - Anaemia [Recovering/Resolving]
  - Gastrointestinal haemorrhage [Recovered/Resolved]
  - Gastrointestinal toxicity [Recovered/Resolved]
  - Haemoglobin decreased [Recovering/Resolving]
  - Varices oesophageal [Unknown]
  - Portal hypertensive gastropathy [Unknown]
  - Off label use [Unknown]

NARRATIVE: CASE EVENT DATE: 20220404
